FAERS Safety Report 24376649 (Version 1)
Quarter: 2024Q3

REPORT INFORMATION
  Report Type: Report from Study
  Country: CA (occurrence: CA)
  Receive Date: 20240930
  Receipt Date: 20240930
  Transmission Date: 20241017
  Serious: Yes (Death)
  Sender: NOVARTIS
  Company Number: CA-002147023-NVSC2024CA192203

PATIENT
  Age: 57 Year

DRUGS (1)
  1. LEQVIO [Suspect]
     Active Substance: INCLISIRAN SODIUM
     Indication: Type IIa hyperlipidaemia
     Dosage: 284 MG, OTHER (BASELINE, 3 MONTHS, EVERY 6 MONTHS THEREAFTER)
     Route: 058
     Dates: start: 20240807

REACTIONS (1)
  - Myocardial infarction [Fatal]
